FAERS Safety Report 7322656-6 (Version None)
Quarter: 2011Q1

REPORT INFORMATION
  Report Type: 
  Country: None (occurrence: None)
  Receive Date: 20110301
  Receipt Date: 20091030
  Transmission Date: 20110831
  Serious: No
  Sender: FDA-Public Use
  Company Number: US-PFIZER INC-2009291236

PATIENT
  Sex: Female

DRUGS (2)
  1. GLUCOTROL [Suspect]
     Indication: DIABETES MELLITUS
     Dosage: 2.5 MG, 1X/DAY
     Route: 048
     Dates: start: 20090709
  2. ACTOS [Suspect]
     Indication: DIABETES MELLITUS
     Dosage: 15 MG, 1X/DAY
     Route: 048
     Dates: start: 20090709

REACTIONS (4)
  - ACNE [None]
  - ARTHRALGIA [None]
  - HORMONE LEVEL ABNORMAL [None]
  - CYST [None]
